FAERS Safety Report 6274870-9 (Version None)
Quarter: 2009Q3

REPORT INFORMATION
  Report Type: 
  Country: None (occurrence: None)
  Receive Date: 20090721
  Receipt Date: 20090716
  Transmission Date: 20100115
  Serious: Yes (Hospitalization, Other)
  Sender: FDA-Public Use
  Company Number: FR-BRISTOL-MYERS SQUIBB COMPANY-14705990

PATIENT
  Age: 77 Year
  Sex: Female

DRUGS (13)
  1. ELISOR TABS [Suspect]
     Indication: DYSLIPIDAEMIA
     Dosage: ELISOR 40 MG TABS IN THE EVENING
     Route: 048
     Dates: start: 20080610, end: 20080711
  2. LOVENOX [Suspect]
     Dosage: 1 AMPOULE DAILY
     Dates: start: 20080607, end: 20080711
  3. OGASTORO [Suspect]
     Indication: GASTRODUODENAL ULCER
     Dosage: 1 DF = 1(UNIT NOT SPECIFIED)IN THE EVENING
     Route: 048
     Dates: start: 20080610, end: 20080711
  4. DOLIPRANE [Suspect]
     Indication: PAIN
     Dosage: 4 TABLETS IF NEEDED
     Route: 048
     Dates: start: 20080610, end: 20080711
  5. NIMOTOP [Suspect]
     Dosage: 3 TABLETS
     Route: 048
     Dates: start: 20080610, end: 20080711
  6. IMOVANE [Suspect]
     Indication: INSOMNIA
     Dosage: 1 DF = 1 DAILY BEFORE SLEEPING
     Route: 048
     Dates: start: 20080610, end: 20080711
  7. SPECIAFOLDINE [Suspect]
     Indication: ANAEMIA
     Dosage: 1 DF = 1 DAILY IN THE MORNING
     Route: 048
     Dates: start: 20080624, end: 20080711
  8. IRBESARTAN [Concomitant]
     Dosage: 1 DF = APROVEL 75 1 IN THE MORNING
     Dates: start: 20080610, end: 20080702
  9. POLYETHYLENE GLYCOL [Concomitant]
     Indication: CONSTIPATION
     Dosage: 1 DF = 1 DAILY IN THE MORNING
     Route: 048
     Dates: start: 20080630, end: 20080711
  10. TARDYFERON [Concomitant]
     Indication: ANAEMIA
     Dosage: 2 DF = 2 (UNIT NOT SPECIFIED) IN THE MORNING
     Route: 048
     Dates: start: 20080602, end: 20080711
  11. DIFFU-K [Concomitant]
     Dosage: 1 DF = 2 IN THE MORNING AND 2 IN THE EVENING
     Dates: start: 20080610, end: 20080710
  12. AERIUS [Concomitant]
     Dosage: 1 DF = 1 IN THE EVENING
     Dates: start: 20080610, end: 20080625
  13. ATARAX [Concomitant]
     Indication: AGITATION
     Dosage: 1 DF= 25 ONCE IN NIGHT
     Dates: start: 20080610, end: 20080624

REACTIONS (2)
  - ANGIOEDEMA [None]
  - SUBARACHNOID HAEMORRHAGE [None]
